FAERS Safety Report 4824281-5 (Version None)
Quarter: 2005Q4

REPORT INFORMATION
  Report Type: 
  Country: None (occurrence: None)
  Receive Date: 20051108
  Receipt Date: 20051027
  Transmission Date: 20060501
  Serious: No
  Sender: FDA-Public Use
  Company Number: USA0510112138

PATIENT
  Age: 20 Year
  Sex: Female

DRUGS (2)
  1. STRATTERA [Suspect]
     Indication: ATTENTION DEFICIT/HYPERACTIVITY DISORDER
     Dosage: 50 MG
     Dates: start: 20050809, end: 20051026
  2. ORAL CONTRACEPTIVE NOS [Concomitant]

REACTIONS (2)
  - LIVER DISORDER [None]
  - PAIN [None]
